FAERS Safety Report 20951083 (Version 1)
Quarter: 2022Q2

REPORT INFORMATION
  Report Type: Spontaneous
  Country: US (occurrence: None)
  Receive Date: 20220610
  Receipt Date: 20220610
  Transmission Date: 20220721
  Serious: Yes (Other)
  Sender: FDA-Public Use
  Company Number: None

PATIENT
  Age: 75 Year
  Sex: Female
  Weight: 52.2 kg

DRUGS (2)
  1. PACLITAXEL [Suspect]
     Active Substance: PACLITAXEL
     Indication: Product used for unknown indication
     Dosage: OTHER FREQUENCY : CHEMOTHERAPY CYCLE;?
     Route: 042
     Dates: start: 20220526, end: 20220526
  2. CARBOPLATIN [Concomitant]
     Active Substance: CARBOPLATIN
     Dates: start: 20220526, end: 20220526

REACTIONS (5)
  - Palpitations [None]
  - Erythema [None]
  - Ear discomfort [None]
  - Blood pressure increased [None]
  - Anxiety [None]

NARRATIVE: CASE EVENT DATE: 20220526
